FAERS Safety Report 6420068-0 (Version None)
Quarter: 2009Q4

REPORT INFORMATION
  Report Type: 
  Country: None (occurrence: None)
  Receive Date: 20091029
  Receipt Date: 20091020
  Transmission Date: 20100525
  Serious: Yes (Death, Other)
  Sender: FDA-Public Use
  Company Number: AT-PFIZER INC-2009286237

PATIENT
  Age: 54 Year

DRUGS (2)
  1. XANOR [Suspect]
     Indication: INSOMNIA
     Dosage: UNK
     Route: 048
     Dates: start: 20090916
  2. TRANXILIUM [Suspect]
     Indication: NERVOUSNESS
     Dosage: UNK
     Route: 048
     Dates: start: 20090101

REACTIONS (11)
  - COMPLETED SUICIDE [None]
  - CONFUSIONAL STATE [None]
  - DECREASED APPETITE [None]
  - DEPRESSION [None]
  - DYSPNOEA [None]
  - HALLUCINATION [None]
  - LOSS OF CONSCIOUSNESS [None]
  - MYDRIASIS [None]
  - MYOCARDIAL INFARCTION [None]
  - PERSONALITY CHANGE [None]
  - WEIGHT DECREASED [None]
